FAERS Safety Report 19144661 (Version 1)
Quarter: 2021Q2

REPORT INFORMATION
  Report Type: Spontaneous
  Country: US (occurrence: US)
  Receive Date: 20210415
  Receipt Date: 20210415
  Transmission Date: 20210717
  Serious: Yes (Death)
  Sender: FDA-Public Use
  Company Number: None

PATIENT
  Age: 86 Year
  Sex: Female

DRUGS (1)
  1. TOBRAMYCIN 300MG/5ML [Suspect]
     Active Substance: TOBRAMYCIN
     Dosage: NEBULIZER

REACTIONS (1)
  - Death [None]

NARRATIVE: CASE EVENT DATE: 20210415
